FAERS Safety Report 21935172 (Version 3)
Quarter: 2023Q1

REPORT INFORMATION
  Report Type: Other
  Country: GB (occurrence: GB)
  Receive Date: 20230201
  Receipt Date: 20230220
  Transmission Date: 20230418
  Serious: Yes (Congenital Anomaly, Other)
  Sender: FDA-Public Use
  Company Number: GB-MACLEODS PHARMA EU LTD-MAC2023039543

PATIENT

DRUGS (3)
  1. EMTRICITABINE\TENOFOVIR DISOPROXIL [Suspect]
     Active Substance: EMTRICITABINE\TENOFOVIR DISOPROXIL
     Indication: Product used for unknown indication
     Dosage: UNK,(TAB/CAP, 1 COURSE DURING FIRST TRIMESTER, PRIOR TO CONCEPTION, ONGOING AT DELIVERY)
     Route: 064
     Dates: start: 20191219
  2. RITONAVIR [Suspect]
     Active Substance: RITONAVIR
     Indication: Product used for unknown indication
     Dosage: 100 MILLIGRAM, QD  (1 COURSE DURING FIRST TRIMESTER, PRIOR TO CONCEPTION, ONGOING AT DELIVERY)
     Route: 064
     Dates: start: 20110819
  3. REYATAZ [Suspect]
     Active Substance: ATAZANAVIR SULFATE
     Indication: Product used for unknown indication
     Dosage: 300 MILLIGRAM, QD (1 COURSE DURING FIRST TRIMESTER, PRIOR TO CONCEPTION, ONGOING AT DELIVERY)
     Route: 064
     Dates: start: 20110819

REACTIONS (11)
  - Cytogenetic abnormality [Unknown]
  - Intraventricular haemorrhage neonatal [Unknown]
  - White matter lesion [Unknown]
  - Neonatal seizure [Unknown]
  - Pulmonary haemorrhage neonatal [Unknown]
  - Neonatal respiratory distress syndrome [Unknown]
  - Hyperbilirubinaemia neonatal [Unknown]
  - Premature baby [Unknown]
  - Gastrooesophageal reflux disease [Unknown]
  - Periventricular leukomalacia [Unknown]
  - Foetal exposure during pregnancy [Unknown]

NARRATIVE: CASE EVENT DATE: 20220407
